FAERS Safety Report 5114321-0 (Version None)
Quarter: 2006Q3

REPORT INFORMATION
  Report Type: 
  Country: None (occurrence: None)
  Receive Date: 20060925
  Receipt Date: 20050811
  Transmission Date: 20061208
  Serious: Yes (Hospitalization)
  Sender: FDA-Public Use
  Company Number: FR-MERCK-0508FRA00015

PATIENT
  Age: 85 Year
  Sex: Male

DRUGS (4)
  1. ZOCOR [Suspect]
     Route: 048
     Dates: end: 20041126
  2. PROSCAR [Suspect]
     Route: 048
     Dates: end: 20041126
  3. ALFUZOSIN HYDROCHLORIDE [Suspect]
     Route: 048
     Dates: end: 20041126
  4. ZOLEDRONIC ACID [Suspect]
     Route: 042
     Dates: start: 20041110, end: 20041110

REACTIONS (8)
  - ALANINE AMINOTRANSFERASE INCREASED [None]
  - ASPARTATE AMINOTRANSFERASE INCREASED [None]
  - ASTHENIA [None]
  - DISSEMINATED INTRAVASCULAR COAGULATION [None]
  - MALAISE [None]
  - MULTI-ORGAN FAILURE [None]
  - NAUSEA [None]
  - RENAL FAILURE ACUTE [None]
